FAERS Safety Report 15783310 (Version 1)
Quarter: 2019Q1

REPORT INFORMATION
  Report Type: Report from Study
  Country: KR (occurrence: KR)
  Receive Date: 20190102
  Receipt Date: 20190102
  Transmission Date: 20190417
  Serious: Yes (Hospitalization)
  Sender: FDA-Public Use
  Company Number: KR-SA-2018SA335278

PATIENT
  Age: 69 Year
  Sex: Female

DRUGS (2)
  1. INSULIN GLARGINE [Suspect]
     Active Substance: INSULIN GLARGINE
     Indication: DIABETES MELLITUS
     Dosage: 40 U, QD
     Route: 058
     Dates: start: 201811
  2. APIDRA [Suspect]
     Active Substance: INSULIN GLULISINE
     Dosage: 10 U, TID
     Route: 058
     Dates: start: 201811

REACTIONS (6)
  - Foot operation [Unknown]
  - Blood glucose increased [Not Recovered/Not Resolved]
  - Hypoglycaemia [Recovered/Resolved]
  - Product storage error [Unknown]
  - Hyperglycaemia [Recovered/Resolved]
  - Intercepted medication error [Unknown]

NARRATIVE: CASE EVENT DATE: 201811
